FAERS Safety Report 4628389-9 (Version None)
Quarter: 2005Q2

REPORT INFORMATION
  Report Type: 
  Country: None (occurrence: None)
  Receive Date: 20050401
  Receipt Date: 20050321
  Transmission Date: 20051028
  Serious: Yes (Life-Threatening)
  Sender: FDA-Public Use
  Company Number: 031-05

PATIENT
  Age: 5 Year
  Sex: Male
  Weight: 20.8655 kg

DRUGS (1)
  1. ISONIAZID TAB [Suspect]
     Indication: TUBERCULOSIS
     Dosage: 100 MG 2T QD PO
     Route: 048

REACTIONS (6)
  - ALANINE AMINOTRANSFERASE INCREASED [None]
  - ASPARTATE AMINOTRANSFERASE INCREASED [None]
  - BILIRUBIN CONJUGATED INCREASED [None]
  - BLOOD BILIRUBIN INCREASED [None]
  - FATIGUE [None]
  - OCULAR ICTERUS [None]
